FAERS Safety Report 9517360 (Version 2)
Quarter: 2013Q3

REPORT INFORMATION
  Report Type: Report from Study
  Country: CH (occurrence: CH)
  Receive Date: 20130911
  Receipt Date: 20130913
  Transmission Date: 20140515
  Serious: Yes (Other)
  Sender: FDA-Public Use
  Company Number: CH-VERTEX PHARMACEUTICALS INC-2013-009352

PATIENT
  Age: 44 Year
  Sex: Male

DRUGS (5)
  1. INCIVO [Suspect]
     Indication: HEPATITIS C
     Route: 048
     Dates: start: 20120320, end: 201206
  2. PEGASYS [Suspect]
     Indication: HEPATITIS C
     Dosage: DOSAGE FORM: UNSPECIFIED
     Route: 065
     Dates: start: 20120320
  3. COPEGUS [Suspect]
     Indication: HEPATITIS C
     Dosage: DOSAGE FORM: UNSPECIFIED
     Route: 065
     Dates: start: 20120320
  4. TRUVADA [Concomitant]
     Dosage: DOSAGE FORM: UNSPECIFIED
     Dates: start: 201203
  5. ISENTRESS [Concomitant]
     Dosage: DOSAGE FORM: UNSPECIFIED
     Dates: start: 201203

REACTIONS (6)
  - Leukopenia [Unknown]
  - Fatigue [Unknown]
  - Thrombocytopenia [Recovered/Resolved]
  - Pruritus [Recovered/Resolved]
  - Anal pruritus [Recovered/Resolved]
  - Anaemia [Recovered/Resolved]
